FAERS Safety Report 20770997 (Version 5)
Quarter: 2022Q4

REPORT INFORMATION
  Report Type: Spontaneous
  Country: US (occurrence: US)
  Receive Date: 20220429
  Receipt Date: 20221005
  Transmission Date: 20230113
  Serious: No
  Sender: FDA-Public Use
  Company Number: US-PFIZER INC-202200583166

PATIENT
  Age: 11 Year
  Sex: Female
  Weight: 34.47 kg

DRUGS (2)
  1. GENOTROPIN [Suspect]
     Active Substance: SOMATROPIN
     Dosage: 1.8MG ALTERNATING WITH 2.0MG DAILY
     Dates: start: 202204
  2. GENOTROPIN [Suspect]
     Active Substance: SOMATROPIN
     Dosage: DOSAGE IS 1.5
     Dates: start: 20220413

REACTIONS (4)
  - Poor quality device used [Unknown]
  - Wrong technique in device usage process [Unknown]
  - Device loosening [Unknown]
  - Device breakage [Unknown]

NARRATIVE: CASE EVENT DATE: 20220413
